FAERS Safety Report 5239416-2 (Version None)
Quarter: 2007Q1

REPORT INFORMATION
  Report Type: 
  Country: None (occurrence: None)
  Receive Date: 20070216
  Receipt Date: 20070207
  Transmission Date: 20070707
  Serious: Yes (Hospitalization)
  Sender: FDA-Public Use
  Company Number: US-AVENTIS-200710788GDDC

PATIENT
  Age: 43 Year
  Sex: Male
  Weight: 83.4 kg

DRUGS (10)
  1. TAXOTERE [Suspect]
     Route: 042
     Dates: start: 20070108, end: 20070108
  2. CETUXIMAB [Suspect]
     Route: 042
     Dates: start: 20070108, end: 20070108
  3. RADIATION THERAPY [Suspect]
     Dosage: DOSE: TOTAL DOSE 63 GY
  4. FENTANYL TRANSDERMAL SYSTEM [Concomitant]
     Dosage: DOSE: 50 MCG/HOUR
     Route: 023
  5. FLUCONAZOLE [Concomitant]
     Route: 048
  6. HADDAD'S SOLUTION [Concomitant]
     Dosage: DOSE: EVERY 4-6 HOURS PRN AS NEEDED
  7. MINOCYCLINE HCL [Concomitant]
  8. ROXICET [Concomitant]
     Dosage: DOSE: 5-10 ML EVERY 4-6 HOURS AS NEEDED, TAKE 3-4 TIMES A DAY. 5MG/325MG PER 5 ML.
  9. SENOKOT                            /00142201/ [Concomitant]
     Dosage: DOSE: 1 TAB
  10. LIDOCAINE HCL VISCOUS [Concomitant]
     Dosage: DOSE: 15 ML EVERY 3 HOURS AS NEEDED

REACTIONS (5)
  - DEHYDRATION [None]
  - HYPOKALAEMIA [None]
  - NAUSEA [None]
  - RASH [None]
  - VOMITING [None]
